FAERS Safety Report 12594662 (Version 5)
Quarter: 2016Q3

REPORT INFORMATION
  Report Type: Spontaneous
  Country: US (occurrence: US)
  Receive Date: 20160726
  Receipt Date: 20160930
  Transmission Date: 20161109
  Serious: Yes (Hospitalization)
  Sender: FDA-Public Use
  Company Number: US-ACTELION-A-NJ2016-139606

PATIENT
  Age: 33 Year
  Sex: Female

DRUGS (3)
  1. RIOCIGUAT [Concomitant]
     Active Substance: RIOCIGUAT
  2. LETAIRIS [Concomitant]
     Active Substance: AMBRISENTAN
  3. VELETRI [Suspect]
     Active Substance: EPOPROSTENOL
     Indication: PULMONARY HYPERTENSION
     Dosage: 34.3 NG/KG, PER MIN
     Route: 042
     Dates: start: 20150416

REACTIONS (10)
  - Catheter site swelling [Unknown]
  - Infection [Unknown]
  - Pyrexia [Unknown]
  - Clostridium difficile infection [Unknown]
  - Device related infection [Unknown]
  - Paracentesis [Unknown]
  - Abdominal distension [Unknown]
  - Sepsis [Unknown]
  - Medical device change [Unknown]
  - Catheter site warmth [Unknown]
